FAERS Safety Report 15047704 (Version 1)
Quarter: 2018Q2

REPORT INFORMATION
  Report Type: Spontaneous
  Country: SE (occurrence: SE)
  Receive Date: 20180621
  Receipt Date: 20180621
  Transmission Date: 20180711
  Serious: Yes (Other)
  Sender: FDA-Public Use
  Company Number: SE-TEVA-2018-SE-910168

PATIENT
  Age: 71 Year
  Sex: Female

DRUGS (15)
  1. LERGIGAN (PROMETHAZINE HYDROCHLORIDE) [Suspect]
     Active Substance: PROMETHAZINE HYDROCHLORIDE
     Indication: ANXIETY
     Route: 048
     Dates: start: 20171220, end: 20180124
  2. GABAPENTIN. [Concomitant]
     Active Substance: GABAPENTIN
     Route: 065
  3. MIRTAZAPINE. [Suspect]
     Active Substance: MIRTAZAPINE
     Indication: ANXIETY
     Route: 048
     Dates: start: 20171220, end: 20180125
  4. CANDESARTAN/HYDROKLOROTIAZID [Concomitant]
     Route: 065
  5. ATENOLOL. [Concomitant]
     Active Substance: ATENOLOL
     Route: 065
  6. ALENDRONAT [Concomitant]
     Active Substance: ALENDRONATE SODIUM
     Route: 065
  7. CILAXORAL [Concomitant]
     Active Substance: SODIUM PICOSULFATE
     Route: 065
  8. VAGIFEM [Concomitant]
     Active Substance: ESTRADIOL
     Route: 065
  9. LEVAXIN [Concomitant]
     Active Substance: LEVOTHYROXINE SODIUM
     Route: 065
  10. TRESIBA [Concomitant]
     Active Substance: INSULIN DEGLUDEC
     Route: 065
  11. SOBRIL [Concomitant]
     Active Substance: OXAZEPAM
     Route: 065
  12. CRESTOR [Concomitant]
     Active Substance: ROSUVASTATIN CALCIUM
     Route: 065
  13. PAROXETIN [Concomitant]
     Active Substance: PAROXETINE HYDROCHLORIDE
     Route: 065
  14. OMEPRAZOL [Concomitant]
     Active Substance: OMEPRAZOLE
     Route: 065
  15. PREDNISOLON [Concomitant]
     Active Substance: PREDNISOLONE
     Route: 065

REACTIONS (4)
  - Hyponatraemia [Recovered/Resolved]
  - Constipation [Recovered/Resolved]
  - Inappropriate antidiuretic hormone secretion [Recovered/Resolved]
  - Urinary retention [Recovered/Resolved]

NARRATIVE: CASE EVENT DATE: 201801
